FAERS Safety Report 16907784 (Version 1)
Quarter: 2019Q4

REPORT INFORMATION
  Report Type: Other
  Country: GB (occurrence: GB)
  Receive Date: 20191011
  Receipt Date: 20191011
  Transmission Date: 20200122
  Serious: Yes (Other)
  Sender: FDA-Public Use
  Company Number: GB-MACLEODS PHARMACEUTICALS US LTD-MAC2019020244

PATIENT

DRUGS (9)
  1. OLANZAPINE TABLET [Suspect]
     Active Substance: OLANZAPINE
     Dosage: 10 MILLIGRAM, QD
     Route: 048
  2. AZATHIOPRINE. [Suspect]
     Active Substance: AZATHIOPRINE
     Indication: COLITIS
     Dosage: 25 MILLIGRAM, TID, MORNING, LUNCH AND TEA TIME (WITH OR JUST AFTER FOOD/MEAL)
     Route: 048
  3. FERROUS FUMARATE [Suspect]
     Active Substance: FERROUS FUMARATE
     Indication: ANAEMIA
     Dosage: 210 MILLIGRAM, BID, MORNING AND NIGHT
     Route: 048
  4. PROMETHAZINE [Suspect]
     Active Substance: PROMETHAZINE HYDROCHLORIDE
     Indication: PRODUCT USED FOR UNKNOWN INDICATION
     Dosage: 25 MILLIGRAM, QD, AT NIGHT
     Route: 048
  5. ESCITALOPRAM [Suspect]
     Active Substance: ESCITALOPRAM OXALATE
     Indication: PRODUCT USED FOR UNKNOWN INDICATION
     Dosage: 10 MILLIGRAM, QD, EACH MORNING
     Route: 048
  6. MIRTAZAPINE. [Suspect]
     Active Substance: MIRTAZAPINE
     Indication: PRODUCT USED FOR UNKNOWN INDICATION
     Dosage: 30 MILLIGRAM, QD, NIGHT
     Route: 048
  7. DIHYDROCODEINE [Suspect]
     Active Substance: DIHYDROCODEINE
     Indication: PAIN
     Dosage: 60 MG PRN (TWO TO BE TAKEN FOUR TIMES A DAY IF REQUIRED.), WITH OR JUST AFTER FOOD/MEAL
     Route: 048
  8. FOLIC ACID. [Suspect]
     Active Substance: FOLIC ACID
     Indication: FOLATE DEFICIENCY
     Dosage: 5 MILLIGRAM, QD, MORNING
     Route: 048
  9. OLANZAPINE TABLET [Suspect]
     Active Substance: OLANZAPINE
     Indication: PRODUCT USED FOR UNKNOWN INDICATION
     Dosage: 5 MILLIGRAM, QD
     Route: 048

REACTIONS (2)
  - Autoscopy [Unknown]
  - Seizure [Unknown]
